FAERS Safety Report 8285198-X (Version None)
Quarter: 2012Q2

REPORT INFORMATION
  Report Type: 
  Country: None (occurrence: None)
  Receive Date: 20120413
  Receipt Date: 20120203
  Transmission Date: 20120825
  Serious: No
  Sender: FDA-Public Use
  Company Number: US-ASTRAZENECA-2012SE08005

PATIENT
  Age: 84 Year
  Sex: Female
  Weight: 52.6 kg

DRUGS (2)
  1. OTC ALLER CLEAR [Concomitant]
     Indication: SINUS DISORDER
     Route: 065
  2. NEXIUM [Suspect]
     Indication: GASTROOESOPHAGEAL REFLUX DISEASE
     Route: 048
     Dates: start: 20111201

REACTIONS (2)
  - GINGIVAL PAIN [None]
  - ABDOMINAL PAIN UPPER [None]
